FAERS Safety Report 7023612-8 (Version None)
Quarter: 2010Q3

REPORT INFORMATION
  Report Type: 
  Country: None (occurrence: None)
  Receive Date: 20100930
  Receipt Date: 20100930
  Transmission Date: 20110219
  Serious: Yes (Hospitalization)
  Sender: FDA-Public Use
  Company Number: None

PATIENT
  Age: 21 Year
  Sex: Female
  Weight: 47.6277 kg

DRUGS (1)
  1. PROVIGIL [Suspect]
     Indication: NARCOLEPSY
     Dosage: 400 MG EACH DAY PO
     Route: 048
     Dates: start: 20070101, end: 20100910

REACTIONS (2)
  - PITYRIASIS [None]
  - STEVENS-JOHNSON SYNDROME [None]
